FAERS Safety Report 16808948 (Version 1)
Quarter: 2019Q3

REPORT INFORMATION
  Report Type: Spontaneous
  Country: US (occurrence: US)
  Receive Date: 20190724
  Receipt Date: 20190724
  Transmission Date: 20191005
  Serious: Yes (Other)
  Sender: FDA-Public Use
  Company Number: None

PATIENT
  Sex: Female
  Weight: 46.72 kg

DRUGS (2)
  1. LOSARTAN POTASSIUM TABLET 50MG ^AMEL^ [Suspect]
     Active Substance: LOSARTAN POTASSIUM
     Indication: HYPERTENSION
     Dosage: ?          QUANTITY:50 MG MILLIGRAM(S);?
     Route: 048
     Dates: start: 201901, end: 201903
  2. LOSARTAN POTASSIUM TABLET 50MG ^AMEL^ [Suspect]
     Active Substance: LOSARTAN POTASSIUM
     Indication: DIABETES MELLITUS
     Dosage: ?          QUANTITY:50 MG MILLIGRAM(S);?
     Route: 048
     Dates: start: 201901, end: 201903

REACTIONS (8)
  - Heart rate irregular [None]
  - Pain [None]
  - Headache [None]
  - Dizziness [None]
  - Paraesthesia [None]
  - Feeling abnormal [None]
  - Recalled product administered [None]
  - Nausea [None]

NARRATIVE: CASE EVENT DATE: 201903
